FAERS Safety Report 9305316 (Version 1)
Quarter: 2013Q1

REPORT INFORMATION
  Report Type: Spontaneous
  Country: US (occurrence: None)
  Receive Date: 20130111
  Receipt Date: 20130111
  Transmission Date: 20140127
  Serious: Yes (Other)
  Sender: FDA-Public Use
  Company Number: CRC-12-511

PATIENT
  Age: 50 Year
  Sex: Female
  Weight: 89.81 kg

DRUGS (4)
  1. TRAMADOL [Suspect]
     Indication: MYALGIA
     Route: 048
     Dates: start: 20121005
  2. TRAMADOL [Suspect]
     Indication: ARTHRALGIA
     Route: 048
     Dates: start: 20121005
  3. NEBULIZER [Concomitant]
  4. DEXILANT [Concomitant]

REACTIONS (7)
  - Dizziness [None]
  - Headache [None]
  - Photopsia [None]
  - Coordination abnormal [None]
  - Decreased appetite [None]
  - Dysstasia [None]
  - Feeling abnormal [None]
